FAERS Safety Report 4706835-X (Version None)
Quarter: 2005Q3

REPORT INFORMATION
  Report Type: 
  Country: None (occurrence: None)
  Receive Date: 20050705
  Receipt Date: 20050621
  Transmission Date: 20060218
  Serious: Yes (Hospitalization)
  Sender: FDA-Public Use
  Company Number: HQWYE467716JUN04

PATIENT
  Age: 50 Year
  Sex: Female
  Weight: 63.56 kg

DRUGS (7)
  1. RAPAMUNE [Suspect]
     Indication: PROPHYLAXIS AGAINST TRANSPLANT REJECTION
     Dates: start: 20040225, end: 20040101
  2. PREDNISONE TAB [Concomitant]
  3. ISOPHANE INSULIN [Concomitant]
  4. ILETIN REGULAR (INSULIN) [Concomitant]
  5. ZANTAC [Concomitant]
  6. DOXEPIN HCL [Concomitant]
  7. ZETIA [Concomitant]

REACTIONS (12)
  - BODY TEMPERATURE DECREASED [None]
  - CALCIUM IONISED DECREASED [None]
  - DIARRHOEA [None]
  - ELECTROCARDIOGRAM QT PROLONGED [None]
  - HYPOCALCAEMIA [None]
  - INFLAMMATION [None]
  - JOINT STIFFNESS [None]
  - LIVER DISORDER [None]
  - MUSCLE SPASMS [None]
  - MYALGIA [None]
  - PARAESTHESIA [None]
  - VITAMIN D DEFICIENCY [None]
